FAERS Safety Report 13950392 (Version 1)
Quarter: 2017Q3

REPORT INFORMATION
  Report Type: Report from Study
  Country: None (occurrence: CH)
  Receive Date: 20170908
  Receipt Date: 20170908
  Transmission Date: 20171128
  Serious: Yes (Hospitalization)
  Sender: FDA-Public Use
  Company Number: CH-ABBVIE-17K-151-2095193-00

PATIENT
  Sex: Female

DRUGS (1)
  1. DUODOPA [Suspect]
     Active Substance: CARBIDOPA\LEVODOPA
     Indication: PARKINSON^S DISEASE
     Dosage: MD 4.0ML?CRD 3.7ML/H?CRN 1.5ML/H?ED 1.5ML?24H THERAPY
     Route: 050
     Dates: start: 20170201

REACTIONS (2)
  - Road traffic accident [Unknown]
  - Surgery [Unknown]

NARRATIVE: CASE EVENT DATE: 2017
